FAERS Safety Report 17009235 (Version 1)
Quarter: 2019Q4

REPORT INFORMATION
  Report Type: Spontaneous
  Country: US (occurrence: US)
  Receive Date: 20191108
  Receipt Date: 20191108
  Transmission Date: 20200122
  Serious: Yes (Hospitalization)
  Sender: FDA-Public Use
  Company Number: US-UNICHEM PHARMACEUTICALS (USA) INC-UCM201911-000696

PATIENT

DRUGS (2)
  1. PROPAFENONE. [Suspect]
     Active Substance: PROPAFENONE
     Indication: INTENTIONAL OVERDOSE
     Dosage: 3.8 GRAMS
  2. VALSARTAN. [Suspect]
     Active Substance: VALSARTAN
     Indication: INTENTIONAL OVERDOSE
     Dosage: 11.7 GRAMS

REACTIONS (4)
  - Hypotension [Recovered/Resolved]
  - Ventricular fibrillation [Recovered/Resolved]
  - Electrocardiogram QT prolonged [Recovered/Resolved]
  - Intentional overdose [Recovered/Resolved]
